FAERS Safety Report 4888441-X (Version None)
Quarter: 2005Q4

REPORT INFORMATION
  Report Type: 
  Country: None (occurrence: None)
  Receive Date: 20051221
  Receipt Date: 20051010
  Transmission Date: 20060501
  Serious: No
  Sender: FDA-Public Use
  Company Number: US-YAMANOUCHI-YPA20050470

PATIENT
  Age: 86 Year
  Sex: Female
  Weight: 68.0396 kg

DRUGS (19)
  1. VESICARE [Suspect]
     Indication: MICTURITION URGENCY
     Dosage: 5 MG QD PO
     Route: 048
     Dates: start: 20050901
  2. VESICARE [Suspect]
     Indication: NEUROGENIC BLADDER
     Dosage: 5 MG QD PO
     Route: 048
     Dates: start: 20050901
  3. ZOLOFT [Concomitant]
  4. NAMENDA [Concomitant]
  5. IMDUR [Concomitant]
  6. LOPRESSOR [Concomitant]
  7. NORVASC [Concomitant]
  8. CAPOTEN [Concomitant]
  9. ASPIRIN [Concomitant]
  10. ZETIA [Concomitant]
  11. ZOCOR [Concomitant]
  12. BUMEX [Concomitant]
  13. PROTONIX [Concomitant]
  14. TYLENOL (CAPLET) [Concomitant]
  15. NOVOLOG MIX [Concomitant]
  16. VITAMINS [Concomitant]
  17. BENADRYL [Concomitant]
  18. XANAX [Concomitant]
  19. OXYTROL [Concomitant]

REACTIONS (2)
  - DRY MOUTH [None]
  - MICTURITION URGENCY [None]
